FAERS Safety Report 15979874 (Version 1)
Quarter: 2019Q1

REPORT INFORMATION
  Report Type: Spontaneous
  Country: US (occurrence: US)
  Receive Date: 20190218
  Receipt Date: 20190218
  Transmission Date: 20190418
  Serious: Yes (Life-Threatening, Hospitalization)
  Sender: FDA-Public Use
  Company Number: None

PATIENT
  Age: 44 Year
  Sex: Female
  Weight: 92.7 kg

DRUGS (4)
  1. ZYRTEC [Concomitant]
     Active Substance: CETIRIZINE HYDROCHLORIDE
  2. CONTRAVE [Suspect]
     Active Substance: BUPROPION HYDROCHLORIDE\NALTREXONE HYDROCHLORIDE
     Indication: OBESITY
     Dates: start: 20170727, end: 20170831
  3. BUDESONIDE. [Concomitant]
     Active Substance: BUDESONIDE
  4. LYSINE-500 MG PER DAY [Concomitant]

REACTIONS (3)
  - Inflammation [None]
  - Urticaria [None]
  - Pneumonia [None]

NARRATIVE: CASE EVENT DATE: 20170831
